FAERS Safety Report 8929946 (Version 1)
Quarter: 2012Q4

REPORT INFORMATION
  Report Type: 
  Country: CH (occurrence: CH)
  Receive Date: 20121128
  Receipt Date: 20121128
  Transmission Date: 20130627
  Serious: Yes (Life-Threatening)
  Sender: FDA-Public Use
  Company Number: PHHY2012CH094062

PATIENT
  Age: 61 Year
  Sex: Female

DRUGS (13)
  1. VINCRISTINE [Suspect]
     Dosage: 1.4 mg/m2, UNK
     Dates: start: 20080122, end: 20080401
  2. DOXORUBICIN [Suspect]
     Indication: NON-HODGKIN^S LYMPHOMA
     Dosage: 50 mg/m2, UNK
     Dates: start: 20080122, end: 20080401
  3. PREDNISONE [Suspect]
     Dosage: 40 mg/m2, UNK
     Dates: start: 20080122, end: 20080401
  4. AZITHROMYCIN [Suspect]
     Dosage: UNK UKN, UNK
     Dates: start: 201205
  5. CYCLOPHOSPHAMIDE [Suspect]
     Indication: NON-HODGKIN^S LYMPHOMA
     Dosage: 750 mg/m2, UNK
     Dates: start: 20080122, end: 20080401
  6. RITUXIMAB [Suspect]
     Indication: NON-HODGKIN^S LYMPHOMA
     Dosage: 375 mg/m2, UNK
     Dates: start: 20080122, end: 20080401
  7. RITUXIMAB [Suspect]
     Dosage: 375 mg/m2, UNK
     Dates: start: 200807, end: 201007
  8. TORASEMIDE [Concomitant]
     Dosage: 10 mg, QD
  9. CODIOVAN [Concomitant]
     Dosage: 1 DF, QD
  10. MAG 2 [Concomitant]
     Dosage: 1 DF, QD
  11. LISINOPRIL [Concomitant]
     Dosage: 15 mg, QD
     Dates: start: 20120802
  12. BELOC-ZOK [Concomitant]
     Dosage: 25 mg, QD
     Dates: start: 20120802
  13. ALDACTONE [Concomitant]
     Dosage: 25 mg, QD
     Dates: start: 20120802

REACTIONS (11)
  - Cardiac failure [Unknown]
  - Dyspnoea [Recovered/Resolved]
  - Weight increased [Unknown]
  - Oedema peripheral [Recovered/Resolved]
  - Cardiomegaly [Unknown]
  - Pleural effusion [Unknown]
  - Cardiac disorder [Unknown]
  - Dyskinesia [Unknown]
  - Ventricular hypokinesia [Unknown]
  - Dilatation atrial [Unknown]
  - Bronchitis [Recovered/Resolved]
